FAERS Safety Report 9943481 (Version 2)
Quarter: 2014Q2

REPORT INFORMATION
  Report Type: Spontaneous
  Country: AU (occurrence: AU)
  Receive Date: 20140303
  Receipt Date: 20140418
  Transmission Date: 20141212
  Serious: Yes (Hospitalization, Other)
  Sender: FDA-Public Use
  Company Number: AU-PFIZER INC-2014058797

PATIENT
  Age: 76 Year
  Sex: Female
  Weight: 65.8 kg

DRUGS (21)
  1. LYRICA [Suspect]
     Indication: NEURALGIA
     Dosage: 25 MG, 2X/DAY
     Route: 048
  2. LYRICA [Suspect]
     Indication: SCIATICA
     Dosage: 75 MG, 2X/DAY
     Route: 048
  3. ALDACTONE [Concomitant]
     Indication: CARDIOMYOPATHY
     Dosage: TWO IN THE MORNING, ONE AT NIGHT
     Route: 048
  4. AMIODARONE HYDROCHLORIDE [Concomitant]
     Indication: ATRIAL FIBRILLATION
     Dosage: 200 MG, 1X/DAY IN THE MORNING
     Route: 048
  5. ARANESP [Concomitant]
     Indication: NEPHROGENIC ANAEMIA
     Dosage: 40MCG/0.4ML, EVERY 6 WEEKS
     Route: 058
  6. CARTIA EC [Concomitant]
     Indication: CARDIOMYOPATHY
     Dosage: 100 MG, 1X/DAY IN THE MORNING WITH MEALS
     Route: 048
  7. COUMADIN ^BOOTS^ [Concomitant]
     Indication: ATRIAL FIBRILLATION
     Dosage: AT NIGHT AS DIRECTED
     Route: 048
  8. COVERSYL [Concomitant]
     Indication: HYPERTENSION
     Dosage: 5 MG, 1X/DAY IN THE MORNING
     Route: 048
  9. ENDEP [Concomitant]
     Indication: INSOMNIA
     Dosage: 2 DF AT NIGHT IF REQUIRED
     Route: 048
  10. LASIX [Concomitant]
     Indication: CARDIOMYOPATHY
     Dosage: TWICE A DAY, 2 IN THE MORNING, ONE IN MIDDAY
     Route: 048
  11. LIPITOR [Concomitant]
     Indication: HYPERCHOLESTEROLAEMIA
     Dosage: 80 MG, 1X/DAY IN THE MORNING
     Route: 048
  12. LOSEC EC [Concomitant]
     Indication: THROAT IRRITATION
     Dosage: 20 MG, 1X/DAY IN THE MORNING
     Route: 048
  13. MYLANTA DOUBLE STRENGTH [Concomitant]
     Indication: RENAL IMPAIRMENT
     Dosage: 10 ML AT NIGHT IF REQUIRED (30MG/5ML)
     Route: 048
  14. OSTELIN VITAMIN D [Concomitant]
     Indication: VITAMIN D DEFICIENCY
     Dosage: 1 DF, 1X/DAY
     Route: 048
  15. PANADOL OSTEO [Concomitant]
     Indication: ARTHRALGIA
     Dosage: 2-3 TIMES A DAY IF REQUIRED
     Route: 048
  16. SERETIDE [Concomitant]
     Indication: CHRONIC OBSTRUCTIVE PULMONARY DISEASE
     Dosage: 250MCG-25MCG/DOSE, TWICE A DAY IF REQUIRED
     Route: 055
  17. SLOW-K [Concomitant]
     Indication: CARDIAC FAILURE
     Dosage: 600 MG, 2X/DAY WITH MEALS
     Route: 048
  18. SPIRIVA [Concomitant]
     Indication: CHRONIC OBSTRUCTIVE PULMONARY DISEASE
     Dosage: 1 DF, 1X/DAY AT THE SAME EACH DAY
     Route: 055
  19. THYROXINE SODIUM [Concomitant]
     Indication: HYPOTHYROIDISM
     Dosage: 1 DF, 1X/DAY IN THE MORNING
     Route: 048
  20. TRAMADOL [Concomitant]
     Indication: SCIATICA
     Dosage: 1-2 DF FOUR TIMES A DAY
     Route: 048
  21. VENTOLINE [Concomitant]
     Indication: CHRONIC OBSTRUCTIVE PULMONARY DISEASE
     Dosage: 2 DF, FOUR HOURLY AS NEEDED
     Route: 055

REACTIONS (4)
  - Renal failure acute [Recovering/Resolving]
  - Status epilepticus [Recovering/Resolving]
  - Myoclonus [Recovered/Resolved with Sequelae]
  - Confusional state [Recovered/Resolved with Sequelae]
